FAERS Safety Report 8530767-2 (Version None)
Quarter: 2012Q3

REPORT INFORMATION
  Report Type: 
  Country: None (occurrence: None)
  Receive Date: 20120723
  Receipt Date: 20120719
  Transmission Date: 20120928
  Serious: Yes (Hospitalization, Other)
  Sender: FDA-Public Use
  Company Number: PHFR2012GB003469

PATIENT
  Sex: Female
  Weight: 70 kg

DRUGS (4)
  1. HALOPERIDOL [Concomitant]
     Indication: PSYCHOTIC DISORDER
     Dosage: 5 MG, PRN
     Dates: start: 20111220
  2. CLOZARIL [Suspect]
     Indication: SCHIZOPHRENIA
     Dosage: 150 MG, BID
     Route: 048
     Dates: start: 20120510, end: 20120712
  3. LAMOTRIGINE [Concomitant]
     Indication: AFFECTIVE DISORDER
     Dosage: 100 MG, BID
     Route: 048
     Dates: start: 20110808
  4. OXAZEPAM [Concomitant]
     Indication: ANXIOLYTIC THERAPY
     Dosage: 25 MG, QD
     Route: 048
     Dates: start: 20110808

REACTIONS (11)
  - URINARY TRACT INFECTION [None]
  - DECREASED APPETITE [None]
  - RESPIRATORY TRACT INFECTION [None]
  - HYPOPHAGIA [None]
  - WEIGHT DECREASED [None]
  - ASTHENIA [None]
  - DIABETES MELLITUS [None]
  - MENTAL DISORDER [None]
  - MALAISE [None]
  - DEHYDRATION [None]
  - VOMITING [None]
